FAERS Safety Report 23469463 (Version 2)
Quarter: 2024Q1

REPORT INFORMATION
  Report Type: Spontaneous
  Country: JP (occurrence: JP)
  Receive Date: 20240202
  Receipt Date: 20240212
  Transmission Date: 20240410
  Serious: Yes (Hospitalization, Other)
  Sender: FDA-Public Use
  Company Number: JP-Merck Healthcare KGaA-2024005300

PATIENT
  Age: 8 Decade
  Sex: Female

DRUGS (1)
  1. METGLUCO [Suspect]
     Active Substance: METFORMIN HYDROCHLORIDE
     Indication: Type 2 diabetes mellitus
     Dosage: HIGH DOSE (DOSE UNSPECIFIED)
     Route: 048

REACTIONS (4)
  - Renal impairment [Unknown]
  - Lactic acidosis [Not Recovered/Not Resolved]
  - Hypophagia [Unknown]
  - Physical deconditioning [Unknown]
